FAERS Safety Report 4977360-6 (Version None)
Quarter: 2006Q2

REPORT INFORMATION
  Report Type: 
  Country: None (occurrence: None)
  Receive Date: 20060419
  Receipt Date: 20030605
  Transmission Date: 20061013
  Serious: Yes (Hospitalization, Disabling)
  Sender: FDA-Public Use
  Company Number: US-MERCK-0306USA00846

PATIENT
  Age: 36 Year
  Sex: Female
  Weight: 126 kg

DRUGS (15)
  1. VIOXX [Suspect]
     Indication: ARTHRALGIA
     Route: 048
     Dates: start: 20010711
  2. VIOXX [Suspect]
     Route: 048
     Dates: start: 20001219
  3. VIOXX [Suspect]
     Route: 048
     Dates: start: 20010104
  4. VIOXX [Suspect]
     Route: 048
     Dates: start: 20000209
  5. VIOXX [Suspect]
     Route: 048
     Dates: start: 20020228
  6. VENTOLIN [Concomitant]
     Route: 055
     Dates: start: 20010716
  7. NIFEDIPINE [Concomitant]
     Route: 048
     Dates: start: 20030719
  8. AVALIDE [Concomitant]
     Indication: HYPERTENSION
     Route: 048
     Dates: start: 20040525
  9. ASPIRIN [Concomitant]
     Route: 048
     Dates: start: 20040529
  10. CLARITIN [Concomitant]
     Route: 048
     Dates: start: 20040611
  11. FLOVENT [Concomitant]
     Route: 065
     Dates: start: 20040611
  12. ADVAIR DISKUS 100/50 [Concomitant]
     Route: 048
     Dates: start: 20040529
  13. NASONEX [Concomitant]
     Route: 055
     Dates: start: 20040529
  14. NIFEREX FORTE [Concomitant]
     Route: 047
     Dates: start: 20040529
  15. PHENERGAN EXPECTORANT W/ CODEINE [Concomitant]
     Route: 048
     Dates: start: 20040529

REACTIONS (51)
  - ABDOMINAL PAIN [None]
  - ANAEMIA [None]
  - ANGINA PECTORIS [None]
  - ANHEDONIA [None]
  - AORTIC VALVE INCOMPETENCE [None]
  - ASTHENIA [None]
  - ASTHMA [None]
  - BLOOD IRON DECREASED [None]
  - BRONCHITIS ACUTE [None]
  - CHEST PAIN [None]
  - CORONARY ARTERY DISEASE [None]
  - COUGH [None]
  - DECREASED APPETITE [None]
  - DEEP VEIN THROMBOSIS [None]
  - DEPRESSION [None]
  - DILATATION ATRIAL [None]
  - DILATATION VENTRICULAR [None]
  - DYSPNOEA [None]
  - EMOTIONAL DISTRESS [None]
  - FATIGUE [None]
  - FEELING HOT [None]
  - FEELING JITTERY [None]
  - GASTROENTERITIS [None]
  - HEAD INJURY [None]
  - HEADACHE [None]
  - HYPERTENSION [None]
  - INFLUENZA [None]
  - INSOMNIA [None]
  - LIBIDO DECREASED [None]
  - LOW DENSITY LIPOPROTEIN INCREASED [None]
  - MITRAL VALVE INCOMPETENCE [None]
  - MUSCLE SPASMS [None]
  - NEUROPATHY [None]
  - OEDEMA PERIPHERAL [None]
  - OVARIAN CYST [None]
  - PULMONARY ARTERIAL PRESSURE INCREASED [None]
  - PULMONARY EMBOLISM [None]
  - RESPIRATORY DISTRESS [None]
  - SERUM FERRITIN DECREASED [None]
  - SHOULDER PAIN [None]
  - SLEEP APNOEA SYNDROME [None]
  - SWELLING FACE [None]
  - TRICHOMONIASIS [None]
  - TRICUSPID VALVE INCOMPETENCE [None]
  - ULTRASOUND ABDOMEN [None]
  - UPPER RESPIRATORY TRACT INFECTION [None]
  - URINARY TRACT INFECTION [None]
  - UTERINE DILATION AND CURETTAGE [None]
  - VAGINAL HAEMORRHAGE [None]
  - VISION BLURRED [None]
  - X-RAY LIMB [None]
